FAERS Safety Report 5149569-2 (Version None)
Quarter: 2006Q4

REPORT INFORMATION
  Report Type: 
  Country: None (occurrence: None)
  Receive Date: 20061113
  Receipt Date: 20060511
  Transmission Date: 20070319
  Serious: No
  Sender: FDA-Public Use
  Company Number: US-GLAXOSMITHKLINE-A0605220A

PATIENT
  Age: 75 Year
  Sex: Male

DRUGS (6)
  1. COREG [Suspect]
     Dosage: 6.25MG UNKNOWN
     Route: 048
  2. LASIX [Concomitant]
  3. ZOCOR [Concomitant]
  4. CLARINEX [Concomitant]
  5. COLACE [Concomitant]
  6. ASPIRIN [Concomitant]

REACTIONS (1)
  - ALOPECIA [None]
